FAERS Safety Report 9588653 (Version 1)
Quarter: 2013Q4

REPORT INFORMATION
  Report Type: Spontaneous
  Country: US (occurrence: US)
  Receive Date: 20131003
  Receipt Date: 20131003
  Transmission Date: 20140711
  Serious: No
  Sender: FDA-Public Use
  Company Number: US-AMGEN-USASP2012065124

PATIENT
  Age: 45 Year
  Sex: Male
  Weight: 111.11 kg

DRUGS (4)
  1. ENBREL [Suspect]
     Indication: PSORIASIS
     Dosage: UNK
     Dates: start: 2011, end: 20120620
  2. DIOVAN [Concomitant]
     Dosage: UNK
  3. FISH OIL [Concomitant]
     Dosage: UNK
  4. HUMIRA [Concomitant]

REACTIONS (1)
  - Drug ineffective [Unknown]
